FAERS Safety Report 8252263-2 (Version None)
Quarter: 2012Q2

REPORT INFORMATION
  Report Type: 
  Country: None (occurrence: None)
  Receive Date: 20120402
  Receipt Date: 20110919
  Transmission Date: 20120825
  Serious: No
  Sender: FDA-Public Use
  Company Number: US-ABBOTT-11P-163-0857346-00

PATIENT
  Age: 37 Year
  Sex: Male
  Weight: 136.2 kg

DRUGS (1)
  1. ANDROGEL [Suspect]
     Indication: BLOOD TESTOSTERONE DECREASED
     Dates: start: 20100101, end: 20110901

REACTIONS (3)
  - SKIN ODOUR ABNORMAL [None]
  - BREATH ODOUR [None]
  - ERYTHEMA [None]
